FAERS Safety Report 8412705-6 (Version None)
Quarter: 2012Q2

REPORT INFORMATION
  Report Type: 
  Country: None (occurrence: None)
  Receive Date: 20120531
  Receipt Date: 20120531
  Transmission Date: 20120825
  Serious: Yes (Other)
  Sender: FDA-Public Use
  Company Number: None

PATIENT
  Age: 29 Year
  Sex: Male
  Weight: 131.5431 kg

DRUGS (2)
  1. CELEBREX [Suspect]
     Indication: ARTHRITIS
     Dosage: 200 MG ONCE DAILY PO
     Route: 048
     Dates: start: 20120525, end: 20120530
  2. CELEBREX [Suspect]
     Indication: MENISCUS LESION
     Dosage: 200 MG ONCE DAILY PO
     Route: 048
     Dates: start: 20120525, end: 20120530

REACTIONS (7)
  - SWELLING FACE [None]
  - POLLAKIURIA [None]
  - EYE DISCHARGE [None]
  - EYELID PAIN [None]
  - URINARY INCONTINENCE [None]
  - SCAB [None]
  - CONJUNCTIVITIS [None]
